FAERS Safety Report 9639124 (Version 1)
Quarter: 2013Q4

REPORT INFORMATION
  Report Type: Spontaneous
  Country: US (occurrence: US)
  Receive Date: 20131022
  Receipt Date: 20131022
  Transmission Date: 20140711
  Serious: Yes (Hospitalization)
  Sender: FDA-Public Use
  Company Number: US-PFIZER INC-2013297576

PATIENT
  Age: 8 Year
  Sex: Male

DRUGS (1)
  1. BENEFIX [Suspect]
     Indication: FACTOR VIII DEFICIENCY
     Dosage: 1000 IU, UNK
     Dates: start: 20100830

REACTIONS (1)
  - Injury [Unknown]
